FAERS Safety Report 10573878 (Version 4)
Quarter: 2014Q4

REPORT INFORMATION
  Report Type: Report from Study
  Country: US (occurrence: US)
  Receive Date: 20141110
  Receipt Date: 20141230
  Transmission Date: 20150529
  Serious: Yes (Hospitalization, Other)
  Sender: FDA-Public Use
  Company Number: PHEH2014US018633

PATIENT
  Age: 63 Year
  Sex: Female

DRUGS (2)
  1. GILENYA [Suspect]
     Active Substance: FINGOLIMOD HYDROCHLORIDE
     Indication: MULTIPLE SCLEROSIS
     Dosage: 0.5 MG, QD
     Route: 048
     Dates: start: 20140807
  2. PREDNISONE. [Concomitant]
     Active Substance: PREDNISONE
     Indication: BALANCE DISORDER
     Dosage: 5 DF, TID
     Route: 065

REACTIONS (14)
  - Multiple sclerosis relapse [Recovering/Resolving]
  - Stress [Not Recovered/Not Resolved]
  - Muscular weakness [Not Recovered/Not Resolved]
  - Oral pain [Not Recovered/Not Resolved]
  - Irritability [Not Recovered/Not Resolved]
  - Moaning [Unknown]
  - Oral mucosal erythema [Not Recovered/Not Resolved]
  - Balance disorder [Not Recovered/Not Resolved]
  - Memory impairment [Not Recovered/Not Resolved]
  - Insomnia [Unknown]
  - Rash [Not Recovered/Not Resolved]
  - Confusional state [Unknown]
  - Rash macular [Not Recovered/Not Resolved]
  - Somnolence [Unknown]

NARRATIVE: CASE EVENT DATE: 201410
